FAERS Safety Report 4341799-2 (Version None)
Quarter: 2004Q2

REPORT INFORMATION
  Report Type: 
  Country: None (occurrence: None)
  Receive Date: 20040416
  Receipt Date: 20040408
  Transmission Date: 20050107
  Serious: Yes (Hospitalization)
  Sender: FDA-Public Use
  Company Number: 2004UW07056

PATIENT
  Sex: 0

DRUGS (1)
  1. PULMICORT [Suspect]
     Dates: start: 20031001

REACTIONS (3)
  - BLOOD POTASSIUM INCREASED [None]
  - HYPOALDOSTERONISM [None]
  - WEIGHT INCREASED [None]
